FAERS Safety Report 25290306 (Version 1)
Quarter: 2025Q2

REPORT INFORMATION
  Report Type: Report from Study
  Country: AE (occurrence: AE)
  Receive Date: 20250510
  Receipt Date: 20250510
  Transmission Date: 20250716
  Serious: Yes (Other)
  Sender: JOHNSON AND JOHNSON
  Company Number: AE-JNJFOC-20250507159

PATIENT
  Sex: Female

DRUGS (1)
  1. REMICADE [Suspect]
     Active Substance: INFLIXIMAB
     Indication: Colitis ulcerative
     Route: 041
     Dates: start: 202401

REACTIONS (2)
  - Haematochezia [Unknown]
  - Abdominal pain [Unknown]
